FAERS Safety Report 10036721 (Version 2)
Quarter: 2014Q2

REPORT INFORMATION
  Report Type: Spontaneous
  Country: SI (occurrence: SI)
  Receive Date: 20140326
  Receipt Date: 20140410
  Transmission Date: 20141212
  Serious: Yes (Disabling, Other)
  Sender: FDA-Public Use
  Company Number: SI-AMGEN-SVNSP2014020215

PATIENT
  Age: 66 Year
  Sex: Female
  Weight: 77 kg

DRUGS (4)
  1. PROLIA [Suspect]
     Indication: OSTEOPOROSIS
     Dosage: 60 MG, UNK, 2/YEAR
     Route: 058
     Dates: start: 20110622, end: 20140204
  2. ARCOXIA [Concomitant]
     Indication: ARTHRITIS
     Dosage: 90 UNK, UNK, 1*1
     Route: 048
  3. CALCIUM [Concomitant]
     Indication: OSTEOPOROSIS
     Dosage: 1 G, UNK, 1*1
     Route: 048
  4. ZALDIAR [Concomitant]
     Indication: ARTHRITIS
     Dosage: UNK, 375/345, 3*1
     Route: 048

REACTIONS (2)
  - Femur fracture [Unknown]
  - Osteoarthritis [Unknown]
